FAERS Safety Report 8924043 (Version 1)
Quarter: 2012Q4

REPORT INFORMATION
  Report Type: 
  Country: JP (occurrence: JP)
  Receive Date: 20121127
  Receipt Date: 20121127
  Transmission Date: 20130627
  Serious: Yes (Other)
  Sender: FDA-Public Use
  Company Number: JP-AMGEN-JPNSP2012075098

PATIENT

DRUGS (6)
  1. VECTIBIX [Suspect]
     Indication: LARGE INTESTINE CARCINOMA
     Dosage: UNK UNK, q2wk
     Route: 041
  2. OXALIPLATIN [Concomitant]
     Indication: LARGE INTESTINE CARCINOMA
     Dosage: UNK UNK, q2wk
     Route: 041
  3. FLUOROURACIL [Concomitant]
     Indication: LARGE INTESTINE CARCINOMA
     Dosage: UNK UNK, q2wk
     Route: 040
  4. FLUOROURACIL [Concomitant]
     Route: 041
  5. CALCIUM LEVOFOLINATE [Concomitant]
     Indication: LARGE INTESTINE CARCINOMA
     Dosage: UNK UNK, q2wk
     Route: 041
  6. IRINOTECAN HYDROCHLORIDE [Concomitant]
     Indication: LARGE INTESTINE CARCINOMA
     Dosage: UNK UNK, q2wk
     Route: 041

REACTIONS (1)
  - Neuropathy peripheral [Unknown]
